FAERS Safety Report 16794175 (Version 1)
Quarter: 2019Q3

REPORT INFORMATION
  Report Type: Spontaneous
  Country: IT (occurrence: IT)
  Receive Date: 20190911
  Receipt Date: 20190911
  Transmission Date: 20191005
  Serious: Yes (Other)
  Sender: FDA-Public Use
  Company Number: IT-ACCORD-154503

PATIENT
  Age: 70 Year
  Sex: Female

DRUGS (2)
  1. CARBOPLATIN AHCL [Suspect]
     Active Substance: CARBOPLATIN
     Indication: PRODUCT USED FOR UNKNOWN INDICATION
     Dosage: STRENGTH: 10 MG/ML
     Route: 042
  2. PACLITAXEL MYLAN [Concomitant]
     Active Substance: PACLITAXEL
     Dosage: STRENGTH: 6 MG/ML
     Route: 042

REACTIONS (1)
  - Renal failure [Recovered/Resolved with Sequelae]
